FAERS Safety Report 9259999 (Version 3)
Quarter: 2013Q2

REPORT INFORMATION
  Report Type: Spontaneous
  Country: FR (occurrence: FR)
  Receive Date: 20130429
  Receipt Date: 20130507
  Transmission Date: 20140414
  Serious: Yes (Hospitalization)
  Sender: FDA-Public Use
  Company Number: FR-JNJFOC-20130412788

PATIENT
  Age: 88 Year
  Sex: Female

DRUGS (15)
  1. XARELTO [Suspect]
     Indication: CEREBROVASCULAR ACCIDENT PROPHYLAXIS
     Route: 048
     Dates: start: 20121107, end: 20121116
  2. XARELTO [Suspect]
     Indication: CEREBROVASCULAR ACCIDENT PROPHYLAXIS
     Route: 048
     Dates: start: 20121120, end: 20130314
  3. XARELTO [Suspect]
     Indication: ATRIAL FIBRILLATION
     Route: 048
     Dates: start: 20121107, end: 20121116
  4. XARELTO [Suspect]
     Indication: ATRIAL FIBRILLATION
     Route: 048
     Dates: start: 20121120, end: 20130314
  5. LASILIX [Suspect]
     Indication: PRODUCT USED FOR UNKNOWN INDICATION
     Route: 048
     Dates: end: 201211
  6. GLYCERYL TRINITRATE [Concomitant]
     Route: 065
  7. HALDOL [Concomitant]
     Route: 065
  8. DISCOTRINE [Concomitant]
     Route: 065
  9. EUPANTOL [Concomitant]
     Route: 065
  10. TRANSIPEG [Concomitant]
     Route: 048
  11. INEXIUM [Concomitant]
     Route: 065
  12. CALCIPARINE [Concomitant]
     Route: 065
     Dates: start: 201211
  13. BISOPROLOL [Concomitant]
     Route: 065
  14. PARKINANE [Concomitant]
     Route: 065
  15. DIFFU K [Concomitant]
     Route: 065

REACTIONS (3)
  - Renal failure [Recovering/Resolving]
  - Acute prerenal failure [Recovered/Resolved]
  - Dehydration [Recovered/Resolved]
